FAERS Safety Report 18719028 (Version 1)
Quarter: 2021Q1

REPORT INFORMATION
  Report Type: Spontaneous
  Country: US (occurrence: US)
  Receive Date: 20210108
  Receipt Date: 20210108
  Transmission Date: 20210419
  Serious: No
  Sender: FDA-Public Use
  Company Number: US-NOVOPROD-773047

PATIENT
  Sex: Female

DRUGS (2)
  1. RYBELSUS [Suspect]
     Active Substance: SEMAGLUTIDE
     Indication: WEIGHT CONTROL
  2. RYBELSUS [Suspect]
     Active Substance: SEMAGLUTIDE
     Indication: GLUCOSE TOLERANCE IMPAIRED
     Dosage: 7 MG, QD
     Route: 048
     Dates: start: 202009

REACTIONS (5)
  - Inappropriate schedule of product administration [Not Recovered/Not Resolved]
  - Nausea [Recovered/Resolved]
  - Drug ineffective [Not Recovered/Not Resolved]
  - Product use in unapproved indication [Not Recovered/Not Resolved]
  - Fatigue [Not Recovered/Not Resolved]

NARRATIVE: CASE EVENT DATE: 202010
